FAERS Safety Report 15288860 (Version 1)
Quarter: 2018Q3

REPORT INFORMATION
  Report Type: Other
  Country: DE (occurrence: DE)
  Receive Date: 20180817
  Receipt Date: 20180817
  Transmission Date: 20181010
  Serious: Yes (Other)
  Sender: FDA-Public Use
  Company Number: DE-MACLEODS PHARMACEUTICALS US LTD-MAC2018016398

PATIENT

DRUGS (2)
  1. HETLIOZ [Interacting]
     Active Substance: TASIMELTEON
     Indication: CIRCADIAN RHYTHM SLEEP DISORDER
     Dosage: 20 MILLIGRAM, QD
     Route: 048
     Dates: start: 20161225
  2. CELECOXIB. [Suspect]
     Active Substance: CELECOXIB
     Indication: PAIN
     Dosage: UNK, BID
     Route: 065
     Dates: start: 20170804

REACTIONS (3)
  - Drug effect decreased [Unknown]
  - Drug interaction [Recovered/Resolved]
  - Ankle fracture [Unknown]
